FAERS Safety Report 9819936 (Version 1)
Quarter: 2013Q1

REPORT INFORMATION
  Report Type: Spontaneous
  Country: US (occurrence: None)
  Receive Date: 20130107
  Receipt Date: 20130107
  Transmission Date: 20140127
  Serious: Yes (Other)
  Sender: FDA-Public Use
  Company Number: PHEH2012US019372

PATIENT
  Age: 48 Year
  Sex: Female

DRUGS (5)
  1. GILENYA (FTY) CAPSULE, 0.5MG [Suspect]
     Indication: MULTIPLE SCLEROSIS
     Route: 048
     Dates: start: 20120910
  2. DETROL (TOLTERODINE L-TARTRATE) [Concomitant]
  3. IMIPRAMINE HYDROCHLORIDE (IMIPRAMINE HYDROCHLORIDE) [Concomitant]
  4. WELLBUTRIN XL (BUPROPION HYDROCHLORIDE) [Concomitant]
  5. ETHINYLESTRADIOL W/NORETHINDRONE (ETHINYLESTRADIOL, NORETHISTERONE) [Concomitant]

REACTIONS (7)
  - Balance disorder [None]
  - Temperature intolerance [None]
  - Memory impairment [None]
  - Aphasia [None]
  - Dry mouth [None]
  - Fall [None]
  - Dyspnoea [None]
